FAERS Safety Report 12467016 (Version 1)
Quarter: 2016Q2

REPORT INFORMATION
  Report Type: Spontaneous
  Country: BR (occurrence: BR)
  Receive Date: 20160615
  Receipt Date: 20160615
  Transmission Date: 20160815
  Serious: Yes (Disabling, Other)
  Sender: FDA-Public Use
  Company Number: BR-TORRENT-00003458

PATIENT
  Age: 75 Year
  Sex: Male

DRUGS (1)
  1. SERENATA [Suspect]
     Active Substance: SERTRALINE HYDROCHLORIDE
     Indication: ANXIETY
     Dosage: ONCE DAILY/ ORAL
     Route: 048
     Dates: start: 201604

REACTIONS (3)
  - Muscular weakness [Unknown]
  - Dysstasia [None]
  - Abasia [Unknown]

NARRATIVE: CASE EVENT DATE: 201605
